FAERS Safety Report 10466581 (Version 1)
Quarter: 2014Q3

REPORT INFORMATION
  Report Type: Spontaneous
  Country: US (occurrence: US)
  Receive Date: 20140922
  Receipt Date: 20140922
  Transmission Date: 20150326
  Serious: No
  Sender: FDA-Public Use
  Company Number: US-PFIZER INC-2014257948

PATIENT
  Age: 31 Year
  Sex: Female

DRUGS (3)
  1. DIFLUCAN [Suspect]
     Active Substance: FLUCONAZOLE
     Dosage: 150 MG, (150MG 1 TAB EVERY 3 DAYS X 3 TABS)
     Route: 048
  2. AMOXICILLIN. [Suspect]
     Active Substance: AMOXICILLIN
     Dosage: 500 MG, 2X/DAY (TAKE1 TABLET (500MG) BY ORAL ROUTE EVERY 12 HOURS )
     Route: 048
  3. AMITRIPTYLINE [Suspect]
     Active Substance: AMITRIPTYLINE
     Dosage: 25 MG, AS NEEDED (1 TABLET, 2 TIMES EVERY DAY AS NEEDED)
     Route: 048

REACTIONS (6)
  - Facial pain [Unknown]
  - Ear pain [Unknown]
  - Fatigue [Unknown]
  - Oral pain [Unknown]
  - Pyrexia [Unknown]
  - Arthropod bite [Unknown]
